FAERS Safety Report 6235595-9 (Version None)
Quarter: 2009Q2

REPORT INFORMATION
  Report Type: 
  Country: None (occurrence: None)
  Receive Date: 20090618
  Receipt Date: 20090609
  Transmission Date: 20091009
  Serious: Yes (Hospitalization)
  Sender: FDA-Public Use
  Company Number: US-AMGEN-QUU341595

PATIENT
  Sex: Female
  Weight: 68 kg

DRUGS (2)
  1. ENBREL [Suspect]
     Indication: RHEUMATOID ARTHRITIS
     Route: 058
     Dates: start: 20000801, end: 20090501
  2. LEFLUNOMIDE [Concomitant]

REACTIONS (3)
  - AZOTAEMIA [None]
  - GLOMERULAR FILTRATION RATE DECREASED [None]
  - RENAL CELL CARCINOMA [None]
